FAERS Safety Report 6579344-3 (Version None)
Quarter: 2010Q1

REPORT INFORMATION
  Report Type: 
  Country: None (occurrence: None)
  Receive Date: 20100212
  Receipt Date: 20100203
  Transmission Date: 20100710
  Serious: Yes (Other)
  Sender: FDA-Public Use
  Company Number: US-JNJFOC-20091202383

PATIENT
  Sex: Female
  Weight: 46.27 kg

DRUGS (10)
  1. REMICADE [Suspect]
     Indication: RHEUMATOID ARTHRITIS
     Dosage: DOSE: 2 VIALS
     Route: 042
  2. REMICADE [Suspect]
     Dosage: DOSE: 2 VIALS
     Route: 042
  3. REMICADE [Suspect]
     Route: 042
  4. REMICADE [Suspect]
     Route: 042
  5. REMICADE [Suspect]
     Dosage: DOSE: 2 VIALS
     Route: 042
  6. PLAQUENIL [Concomitant]
  7. RESTASIS [Concomitant]
  8. MOBIC [Concomitant]
  9. AZULFIDINE [Concomitant]
  10. PERCOCET [Concomitant]

REACTIONS (13)
  - ADRENAL INSUFFICIENCY [None]
  - AMYOTROPHIC LATERAL SCLEROSIS [None]
  - CERVICAL MYELOPATHY [None]
  - CERVICAL SPINAL STENOSIS [None]
  - CHILLS [None]
  - FATIGUE [None]
  - HEADACHE [None]
  - HYPERTENSION [None]
  - INFUSION RELATED REACTION [None]
  - MUSCLE ATROPHY [None]
  - THYROID NEOPLASM [None]
  - UPPER RESPIRATORY TRACT INFECTION [None]
  - WEIGHT DECREASED [None]
